FAERS Safety Report 11461010 (Version 1)
Quarter: 2015Q3

REPORT INFORMATION
  Report Type: Spontaneous
  Country: US (occurrence: US)
  Receive Date: 20150904
  Receipt Date: 20150904
  Transmission Date: 20151125
  Serious: Yes (Other)
  Sender: FDA-Public Use
  Company Number: US-TAKEDA-2014TUS009939

PATIENT

DRUGS (9)
  1. AVANDIA [Concomitant]
     Active Substance: ROSIGLITAZONE MALEATE
     Dosage: 4 MG, UNK
     Dates: end: 2006
  2. AMARYL [Concomitant]
     Active Substance: GLIMEPIRIDE
     Dosage: 4 MG, UNK
     Dates: end: 2014
  3. HUMALOG [Concomitant]
     Active Substance: INSULIN LISPRO
     Dosage: UNK
  4. METFORMIN [Concomitant]
     Active Substance: METFORMIN HYDROCHLORIDE
     Dosage: 850 MG, UNK
     Dates: end: 2008
  5. GLUCOPHAGE [Concomitant]
     Active Substance: METFORMIN HYDROCHLORIDE
     Dosage: UNK
  6. LANTUS [Concomitant]
     Active Substance: INSULIN GLARGINE
     Dosage: UNK
  7. GLUCOTROL [Concomitant]
     Active Substance: GLIPIZIDE
     Dosage: 10 MG, UNK
     Dates: end: 2008
  8. VICTOZA [Concomitant]
     Active Substance: LIRAGLUTIDE
     Indication: DIABETES MELLITUS
     Dosage: 18MG/3ML, UNK
     Dates: end: 2014
  9. ACTOS [Suspect]
     Active Substance: PIOGLITAZONE HYDROCHLORIDE
     Indication: TYPE 2 DIABETES MELLITUS
     Dosage: 45 MG, UNK
     Route: 048
     Dates: start: 200708, end: 201012

REACTIONS (1)
  - Bladder cancer [Unknown]

NARRATIVE: CASE EVENT DATE: 20081117
